FAERS Safety Report 17659610 (Version 1)
Quarter: 2020Q2

REPORT INFORMATION
  Report Type: Spontaneous
  Country: US (occurrence: US)
  Receive Date: 20200413
  Receipt Date: 20200413
  Transmission Date: 20200713
  Serious: No
  Sender: FDA-Public Use
  Company Number: US-BION-008097

PATIENT
  Age: 80 Year
  Sex: Female

DRUGS (1)
  1. ALEVE [Suspect]
     Active Substance: NAPROXEN SODIUM
     Indication: PAIN
     Dosage: 1 TABLET EVERY 12 HOURS AS NEEDED?TOOK 4 GELCAPS

REACTIONS (3)
  - Incorrect dose administered [Not Recovered/Not Resolved]
  - Anxiety [Unknown]
  - Accidental overdose [Not Recovered/Not Resolved]

NARRATIVE: CASE EVENT DATE: 20190614
